FAERS Safety Report 5100971-4 (Version None)
Quarter: 2006Q3

REPORT INFORMATION
  Report Type: 
  Country: None (occurrence: None)
  Receive Date: 20060911
  Receipt Date: 20060616
  Transmission Date: 20061208
  Serious: Yes (Other)
  Sender: FDA-Public Use
  Company Number: US-BAYER-200612555BCC

PATIENT
  Age: 52 Year
  Sex: Female
  Weight: 51 kg

DRUGS (1)
  1. NEO-SYNEPHRINE 12 HOUR MOISTURIZING [Suspect]
     Indication: NASAL CONGESTION
     Route: 045
     Dates: start: 20060601

REACTIONS (3)
  - DRUG DEPENDENCE [None]
  - DYSPNOEA [None]
  - SINUS DISORDER [None]
